FAERS Safety Report 25683330 (Version 2)
Quarter: 2025Q3

REPORT INFORMATION
  Report Type: Spontaneous
  Country: JP (occurrence: JP)
  Receive Date: 20250814
  Receipt Date: 20250915
  Transmission Date: 20251021
  Serious: Yes (Hospitalization)
  Sender: JAZZ
  Company Number: JP-JAZZ PHARMACEUTICALS-2025-JP-013709

PATIENT
  Age: 19 Year
  Sex: Male

DRUGS (1)
  1. DEFITELIO [Suspect]
     Active Substance: DEFIBROTIDE SODIUM
     Indication: Venoocclusive liver disease
     Dates: start: 20250502, end: 20250514

REACTIONS (2)
  - Cerebral haemorrhage [Unknown]
  - Central nervous system leukaemia [Unknown]

NARRATIVE: CASE EVENT DATE: 20250514
